FAERS Safety Report 9198234 (Version 2)
Quarter: 2013Q2

REPORT INFORMATION
  Report Type: Spontaneous
  Country: US (occurrence: US)
  Receive Date: 20130329
  Receipt Date: 20130418
  Transmission Date: 20140414
  Serious: Yes (Other)
  Sender: FDA-Public Use
  Company Number: US-BIOGENIDEC-2013BI027884

PATIENT
  Sex: Female

DRUGS (4)
  1. AVONEX [Suspect]
     Indication: PRODUCT USED FOR UNKNOWN INDICATION
     Route: 030
  2. TOPIRAMATE [Concomitant]
  3. LEVOTHYROXINC SODIUM [Concomitant]
  4. NIACIN [Concomitant]

REACTIONS (1)
  - Renal failure [Unknown]
